FAERS Safety Report 7053649-4 (Version None)
Quarter: 2010Q4

REPORT INFORMATION
  Report Type: 
  Country: None (occurrence: None)
  Receive Date: 20101020
  Receipt Date: 20101011
  Transmission Date: 20110411
  Serious: Yes (Other)
  Sender: FDA-Public Use
  Company Number: US-ROCHE-734049

PATIENT
  Age: 79 Year
  Sex: Female
  Weight: 77.1 kg

DRUGS (3)
  1. BONIVA [Suspect]
     Indication: OSTEOPOROSIS
     Route: 042
  2. NEXIUM [Concomitant]
  3. NEURONTIN [Concomitant]

REACTIONS (4)
  - INSOMNIA [None]
  - MASS [None]
  - NEOPLASM MALIGNANT [None]
  - PRURITUS [None]
